FAERS Safety Report 19429452 (Version 1)
Quarter: 2021Q2

REPORT INFORMATION
  Report Type: Spontaneous
  Country: ES (occurrence: ES)
  Receive Date: 20210617
  Receipt Date: 20210617
  Transmission Date: 20210717
  Serious: Yes (Hospitalization)
  Sender: FDA-Public Use
  Company Number: ES-ACCORD-228290

PATIENT
  Age: 62 Year
  Sex: Male

DRUGS (2)
  1. ASTRAZENECA COVID?19 VACCINE [Suspect]
     Active Substance: AZD-1222
     Indication: COVID-19 IMMUNISATION
     Dosage: 1 DOSE ADMINISTERED ? ADMINISTRATION SITE: ARM
     Dates: start: 20210412, end: 20210412
  2. CARBOPLATIN ACCORD [Suspect]
     Active Substance: CARBOPLATIN
     Indication: GALLBLADDER CANCER
     Dosage: STRENGTH: 10 MG / ML, AUC 4
     Dates: start: 20210422, end: 20210422

REACTIONS (2)
  - Abdominal pain [Recovering/Resolving]
  - Ischaemia [Recovering/Resolving]

NARRATIVE: CASE EVENT DATE: 20210424
